FAERS Safety Report 6782156-9 (Version None)
Quarter: 2010Q2

REPORT INFORMATION
  Report Type: 
  Country: None (occurrence: None)
  Receive Date: 20100621
  Receipt Date: 20100604
  Transmission Date: 20101027
  Serious: Yes (Other)
  Sender: FDA-Public Use
  Company Number: PHHY2010US26042

PATIENT
  Sex: Female

DRUGS (4)
  1. DIOVAN [Suspect]
     Dosage: UNK
     Dates: start: 20091022
  2. AMLODIPINE BESYLATE [Concomitant]
  3. SYNTHROID [Concomitant]
  4. PANTOPRAZOLE SODIUM [Concomitant]

REACTIONS (1)
  - COELIAC DISEASE [None]
